FAERS Safety Report 9490102 (Version 1)
Quarter: 2013Q3

REPORT INFORMATION
  Report Type: Spontaneous
  Country: CL (occurrence: CL)
  Receive Date: 20130829
  Receipt Date: 20130829
  Transmission Date: 20140515
  Serious: Yes (Hospitalization, Other)
  Sender: FDA-Public Use
  Company Number: CL-AMGEN-CHLSP2013060844

PATIENT
  Age: 60 Year
  Sex: Female

DRUGS (1)
  1. PROLIA [Suspect]
     Indication: OSTEOPENIA
     Dosage: UNK UNK, UNK
     Route: 058
     Dates: start: 201307

REACTIONS (7)
  - Pleural effusion [Recovering/Resolving]
  - Lymphocytic infiltration [Recovering/Resolving]
  - Fatigue [Not Recovered/Not Resolved]
  - Pericardial effusion [Unknown]
  - Respiratory disorder [Recovering/Resolving]
  - Hepatic cyst [Unknown]
  - Pleural effusion [Recovering/Resolving]
